FAERS Safety Report 24194214 (Version 1)
Quarter: 2024Q3

REPORT INFORMATION
  Report Type: Spontaneous
  Country: DK (occurrence: DK)
  Receive Date: 20240809
  Receipt Date: 20240809
  Transmission Date: 20241017
  Serious: Yes (Hospitalization)
  Sender: SANDOZ
  Company Number: DK-TEVA-VS-3227098

PATIENT
  Age: 21 Year
  Sex: Female

DRUGS (5)
  1. QUETIAPINE [Suspect]
     Active Substance: QUETIAPINE
     Dosage: UNK
     Route: 065
     Dates: start: 20240701
  2. QUETIAPINE [Suspect]
     Active Substance: QUETIAPINE
     Dosage: UNK
     Route: 065
     Dates: start: 2024
  3. QUETIAPINE [Suspect]
     Active Substance: QUETIAPINE
     Indication: Affective disorder
     Dosage: UNK
     Route: 065
     Dates: start: 202312
  4. QUETIAPINE [Suspect]
     Active Substance: QUETIAPINE
     Indication: Abnormal behaviour
     Dosage: UNK
     Route: 065
     Dates: start: 202403
  5. QUETIAPINE [Suspect]
     Active Substance: QUETIAPINE
     Dosage: 5 YEARS AGOUNK
     Route: 065

REACTIONS (1)
  - Aggression [Recovered/Resolved]
